FAERS Safety Report 9169400 (Version 1)
Quarter: 2013Q1

REPORT INFORMATION
  Report Type: Spontaneous
  Country: US (occurrence: US)
  Receive Date: 20130318
  Receipt Date: 20130318
  Transmission Date: 20140127
  Serious: Yes (Hospitalization, Other)
  Sender: FDA-Public Use
  Company Number: US-ROCHE-1200693

PATIENT
  Age: 16 Year
  Sex: Female
  Weight: 116.31 kg

DRUGS (16)
  1. XOLAIR [Suspect]
     Indication: ASTHMA
     Route: 058
     Dates: start: 20120702, end: 20130304
  2. SINGULAIR [Concomitant]
     Indication: ASTHMA
     Dosage: 1 TABLET
     Route: 048
  3. PROAIR (UNITED STATES) [Concomitant]
     Indication: ASTHMA
     Dosage: EVERY 4-6 HOUR AS REQUIRED, 108 MCG/ACT
     Route: 050
  4. DULERA [Concomitant]
     Indication: ASTHMA
     Dosage: 200-5 MCG/ACT
     Route: 050
  5. FLONASE [Concomitant]
     Indication: HYPERSENSITIVITY
     Dosage: 50MG/ACT, 1 SPRAY EACH NOSTRIL (2 SPRAYS EACH NOSTRIL FOR SEASONAL ALLERGIC RHINITIS)
     Route: 050
  6. ALBUTEROL NEBULIZER [Concomitant]
     Indication: ASTHMA
     Dosage: 1 VIAL AS REQUIRED,2.5 MG/3ML,  3 ML IN HHN EVERY 4-6 HOUR AS NEEDED
     Route: 050
  7. COLACE [Concomitant]
     Dosage: 1 CAPSULE
     Route: 048
  8. VERAMYST [Concomitant]
     Dosage: 27.5 MCG/SPRAY, 2 SPRAY IN EACH NOSTRIL DAILY
     Route: 065
  9. EPIPEN [Concomitant]
     Indication: ANAPHYLACTIC REACTION
     Dosage: 1:1000 AS NEEDED
     Route: 065
  10. PREDNISONE [Concomitant]
     Route: 065
  11. PREDNISONE [Concomitant]
     Dosage: FOR 4 DAYS
     Route: 065
  12. PREDNISONE [Concomitant]
     Dosage: FOR 4 DAYS
     Route: 065
  13. PREDNISONE [Concomitant]
     Dosage: FOR 4 DAYS
     Route: 065
  14. DUONEB [Concomitant]
     Dosage: 2.5-0.5 MG
     Route: 065
  15. ZITHROMAX Z-PAK [Concomitant]
     Dosage: 2 PILLS ON 1ST DAY THEN 1 PILLS DAILY
     Route: 048
  16. XOPENEX [Concomitant]

REACTIONS (11)
  - Cough [Unknown]
  - Dysphagia [Unknown]
  - Lip swelling [Recovered/Resolved]
  - Wheezing [Recovered/Resolved]
  - Drooling [Recovered/Resolved]
  - Swelling face [Unknown]
  - Chest discomfort [Unknown]
  - Oropharyngeal pain [Unknown]
  - Blood pressure increased [Unknown]
  - Heart rate increased [Unknown]
  - Rhinitis [Unknown]
